FAERS Safety Report 7128952-X (Version None)
Quarter: 2010Q4

REPORT INFORMATION
  Report Type: 
  Country: None (occurrence: None)
  Receive Date: 20101130
  Receipt Date: 20101129
  Transmission Date: 20110411
  Serious: Yes (Hospitalization)
  Sender: FDA-Public Use
  Company Number: D0061047A

PATIENT
  Age: 48 Year
  Sex: Female

DRUGS (9)
  1. REQUIP [Suspect]
     Dosage: 24MG PER DAY
     Route: 048
  2. AZILECT [Suspect]
     Route: 065
  3. STALEVO 100 [Suspect]
     Route: 065
     Dates: start: 20090101
  4. MADOPAR [Suspect]
     Route: 065
  5. CONCOR COR [Concomitant]
     Dosage: 2.5MG PER DAY
     Route: 065
  6. LEVOCETIRIZINE HYDROCHLORIDE [Concomitant]
     Route: 065
  7. SINGULAIR [Concomitant]
     Route: 065
  8. SYMBICORT [Concomitant]
     Route: 065
  9. BRICANYL [Concomitant]
     Route: 065

REACTIONS (8)
  - ACCOMMODATION DISORDER [None]
  - EYE MOVEMENT DISORDER [None]
  - FATIGUE [None]
  - INAPPROPRIATE SCHEDULE OF DRUG ADMINISTRATION [None]
  - MUSCLE SPASMS [None]
  - NAUSEA [None]
  - VISUAL FIELD DEFECT [None]
  - VOMITING [None]
